FAERS Safety Report 4711635-0 (Version None)
Quarter: 2005Q3

REPORT INFORMATION
  Report Type: 
  Country: None (occurrence: None)
  Receive Date: 20050712
  Receipt Date: 20050704
  Transmission Date: 20060218
  Serious: Yes (Other)
  Sender: FDA-Public Use
  Company Number: PHNR2005AU01051

PATIENT
  Age: 25 Year
  Sex: Female

DRUGS (2)
  1. IMPLANON [Suspect]
     Indication: CONTRACEPTION
     Dates: start: 20030214, end: 20041209
  2. TEGRETOL [Suspect]

REACTIONS (3)
  - ABORTION INDUCED [None]
  - DRUG INTERACTION [None]
  - UNINTENDED PREGNANCY [None]
